FAERS Safety Report 7358832-6 (Version None)
Quarter: 2011Q1

REPORT INFORMATION
  Report Type: 
  Country: None (occurrence: None)
  Receive Date: 20110317
  Receipt Date: 20110310
  Transmission Date: 20110831
  Serious: Yes (Hospitalization)
  Sender: FDA-Public Use
  Company Number: B0698811A

PATIENT
  Age: 56 Year
  Sex: Male
  Weight: 116.8 kg

DRUGS (1)
  1. AVANDIA [Suspect]
     Indication: DIABETES MELLITUS
     Dosage: 8MG PER DAY
     Route: 048
     Dates: start: 19990707, end: 20080524

REACTIONS (9)
  - ANXIETY [None]
  - CEREBROVASCULAR ACCIDENT [None]
  - ERECTILE DYSFUNCTION [None]
  - AMNESIA [None]
  - VIITH NERVE PARALYSIS [None]
  - AGITATION [None]
  - PAIN [None]
  - CEREBRAL INFARCTION [None]
  - LACUNAR INFARCTION [None]
